FAERS Safety Report 4824634-5 (Version None)
Quarter: 2005Q4

REPORT INFORMATION
  Report Type: 
  Country: None (occurrence: None)
  Receive Date: 20051108
  Receipt Date: 20051026
  Transmission Date: 20060501
  Serious: Yes (Hospitalization, Other)
  Sender: FDA-Public Use
  Company Number: 2005136379

PATIENT
  Age: 20 Year
  Sex: Female

DRUGS (1)
  1. SOMATROPIN (SOMATROPIN) [Suspect]
     Indication: GROWTH HORMONE DEFICIENCY
     Dosage: 5 MG, SUBCUTANEOUS
     Route: 058
     Dates: start: 20050808

REACTIONS (5)
  - EYE HAEMORRHAGE [None]
  - FALL [None]
  - HEAD INJURY [None]
  - NAUSEA [None]
  - VOMITING [None]
